FAERS Safety Report 8270421 (Version 4)
Quarter: 2013Q4

REPORT INFORMATION
  Report Type: Report from Study
  Country: DE (occurrence: DE)
  Receive Date: 20111201
  Receipt Date: 20131229
  Transmission Date: 20140711
  Serious: Yes (Death, Other)
  Sender: FDA-Public Use
  Company Number: DE-CELGENEUS-062-21880-11112844

PATIENT
  Sex: 0

DRUGS (6)
  1. REVLIMID [Suspect]
     Indication: PLASMA CELL MYELOMA
     Route: 048
  2. REVLIMID [Suspect]
     Route: 048
  3. REVLIMID [Suspect]
     Route: 048
  4. REVLIMID [Suspect]
     Route: 048
  5. REVLIMID [Suspect]
     Route: 048
  6. IMMUNOSUPPRESSIVES [Concomitant]
     Indication: PRODUCT USED FOR UNKNOWN INDICATION
     Route: 065

REACTIONS (9)
  - Death [Fatal]
  - Fracture [Unknown]
  - Graft versus host disease [Unknown]
  - Arrhythmia [Unknown]
  - Mucosal inflammation [Unknown]
  - Hepatic enzyme increased [Unknown]
  - Plasma cell myeloma [Unknown]
  - Oedema [Unknown]
  - Plasma cell myeloma [Unknown]
